FAERS Safety Report 8836182 (Version 1)
Quarter: 2012Q4

REPORT INFORMATION
  Report Type: 
  Country: US (occurrence: US)
  Receive Date: 20121011
  Receipt Date: 20121011
  Transmission Date: 20130627
  Serious: Yes (Other)
  Sender: FDA-Public Use
  Company Number: US-SANOFI-AVENTIS-2012SA064389

PATIENT
  Sex: Male
  Weight: 81 kg

DRUGS (8)
  1. PLAVIX [Suspect]
     Route: 048
  2. METFORMIN [Concomitant]
     Dosage: extended release (made by Amnea)
  3. AMLODIPINE BESILATE [Concomitant]
  4. ZOCOR [Concomitant]
  5. GLYBURIDE [Concomitant]
     Indication: DIABETES
     Dosage: made by mylan
  6. SYNTHROID [Concomitant]
     Dosage: 0.05
  7. AMBIEN [Concomitant]
     Indication: INSOMNIA
     Dosage: he takes one half a tablet to a whole tablet as needed for sleep
  8. PIOGLITAZONE HYDROCHLORIDE [Concomitant]

REACTIONS (2)
  - Gastritis [Not Recovered/Not Resolved]
  - Dysphagia [Unknown]
